FAERS Safety Report 23955751 (Version 3)
Quarter: 2024Q3

REPORT INFORMATION
  Report Type: Spontaneous
  Country: CN (occurrence: CN)
  Receive Date: 20240610
  Receipt Date: 20240905
  Transmission Date: 20241017
  Serious: Yes (Hospitalization)
  Sender: ROCHE
  Company Number: CN-002147023-NVSC2024CN120197

PATIENT
  Age: 15 Year
  Sex: Male
  Weight: 56 kg

DRUGS (2)
  1. OMALIZUMAB [Suspect]
     Active Substance: OMALIZUMAB
     Indication: Asthma
     Route: 065
     Dates: start: 20240423
  2. OMALIZUMAB [Suspect]
     Active Substance: OMALIZUMAB
     Indication: Rhinitis allergic
     Route: 065
     Dates: start: 20240522

REACTIONS (28)
  - Abdominal pain [Recovering/Resolving]
  - Abdominal lymphadenopathy [Unknown]
  - Gastrointestinal oedema [Unknown]
  - Pelvic fluid collection [Unknown]
  - Chronic gastritis [Unknown]
  - Eosinophil percentage decreased [Unknown]
  - Haematocrit decreased [Unknown]
  - Mean platelet volume increased [Unknown]
  - Blood glucose increased [Unknown]
  - Alanine aminotransferase decreased [Unknown]
  - Blood alkaline phosphatase increased [Unknown]
  - Blood phosphorus increased [Unknown]
  - Apolipoprotein A-I decreased [Unknown]
  - Apolipoprotein B decreased [Unknown]
  - Anti-cyclic citrullinated peptide antibody positive [Unknown]
  - Blood fibrinogen abnormal [Unknown]
  - Blood thyroid stimulating hormone decreased [Unknown]
  - Anti-thyroid antibody increased [Unknown]
  - Urea urine decreased [Unknown]
  - Urine potassium decreased [Unknown]
  - Headache [Unknown]
  - Abdominal pain upper [Recovering/Resolving]
  - Skin exfoliation [Unknown]
  - Nasal obstruction [Recovering/Resolving]
  - Cough [Recovering/Resolving]
  - Asthma [Recovering/Resolving]
  - Abdominal pain [Recovered/Resolved]
  - Blood immunoglobulin E increased [Unknown]

NARRATIVE: CASE EVENT DATE: 20240530
